APPROVED DRUG PRODUCT: CLOBETASOL PROPIONATE
Active Ingredient: CLOBETASOL PROPIONATE
Strength: 0.05%
Dosage Form/Route: CREAM;TOPICAL
Application: A074139 | Product #001
Applicant: COSETTE PHARMACEUTICALS INC
Approved: Aug 3, 1994 | RLD: No | RS: No | Type: DISCN